FAERS Safety Report 4830588-8 (Version None)
Quarter: 2005Q4

REPORT INFORMATION
  Report Type: 
  Country: None (occurrence: None)
  Receive Date: 20051117
  Receipt Date: 20051026
  Transmission Date: 20060501
  Serious: Yes (Death)
  Sender: FDA-Public Use
  Company Number: GB-AVENTIS-200514194EU

PATIENT
  Age: 89 Year
  Sex: Female

DRUGS (9)
  1. CO-AMILOFRUSE [Suspect]
     Indication: DRUG USE FOR UNKNOWN INDICATION
     Dosage: DOSE: 5/40
  2. SPIRIVA [Suspect]
     Indication: DRUG USE FOR UNKNOWN INDICATION
  3. OXYGEN [Suspect]
     Indication: DRUG USE FOR UNKNOWN INDICATION
     Dosage: DOSE: 2 CYLINDER
  4. LACTULOSE [Suspect]
     Indication: DRUG USE FOR UNKNOWN INDICATION
  5. CO-CODAMOL [Suspect]
     Indication: DRUG USE FOR UNKNOWN INDICATION
     Dosage: DOSE: 30/500, 2 PRN
  6. CALCICHEW D3 [Suspect]
     Indication: DRUG USE FOR UNKNOWN INDICATION
  7. SALBUTAMOL [Suspect]
     Indication: DRUG USE FOR UNKNOWN INDICATION
     Route: 055
  8. SERETIDE [Suspect]
     Indication: DRUG USE FOR UNKNOWN INDICATION
     Dosage: DOSE UNIT: UNITS
     Route: 055
  9. UNKNOWN DRUG [Concomitant]

REACTIONS (1)
  - EMPHYSEMA [None]
